FAERS Safety Report 6012029-0 (Version None)
Quarter: 2008Q4

REPORT INFORMATION
  Report Type: 
  Country: None (occurrence: None)
  Receive Date: 20081218
  Receipt Date: 20081029
  Transmission Date: 20090506
  Serious: No
  Sender: FDA-Public Use
  Company Number: US-ASTRAZENECA-2008UW24266

PATIENT
  Age: 50 Year
  Sex: Male
  Weight: 80.7 kg

DRUGS (5)
  1. CRESTOR [Suspect]
     Indication: BLOOD CHOLESTEROL INCREASED
     Route: 048
  2. PROZAC [Concomitant]
  3. ATIVAN [Concomitant]
  4. NASACORT [Concomitant]
  5. LOVAZA [Concomitant]

REACTIONS (2)
  - ABDOMINAL PAIN [None]
  - ACNE [None]
